FAERS Safety Report 17061546 (Version 1)
Quarter: 2019Q4

REPORT INFORMATION
  Report Type: Spontaneous
  Country: GB (occurrence: GB)
  Receive Date: 20191121
  Receipt Date: 20191121
  Transmission Date: 20200122
  Serious: Yes (Other)
  Sender: FDA-Public Use
  Company Number: GB-ARRAY-2019-06780

PATIENT

DRUGS (6)
  1. BRAFTOVI [Suspect]
     Active Substance: ENCORAFENIB
     Indication: METASTATIC MALIGNANT MELANOMA
     Dosage: UNK UNK, QD
     Route: 065
     Dates: start: 201905
  2. BRAFTOVI [Suspect]
     Active Substance: ENCORAFENIB
     Dosage: 300 MG, QD (1/DAY)
     Route: 065
     Dates: start: 201909
  3. MEKTOVI [Suspect]
     Active Substance: BINIMETINIB
     Indication: METASTATIC MALIGNANT MELANOMA
     Dosage: UNK UNK, UNKNOWN
     Route: 065
     Dates: start: 201905
  4. MEKTOVI [Suspect]
     Active Substance: BINIMETINIB
     Dosage: 30 MG, BID (2/DAY)
     Route: 065
     Dates: start: 201909
  5. MEKTOVI [Suspect]
     Active Substance: BINIMETINIB
     Dosage: 15 MG, BID (2/DAY)
     Route: 065
     Dates: start: 201910
  6. BRAFTOVI [Suspect]
     Active Substance: ENCORAFENIB
     Dosage: 200 MG, QD (1/DAY)
     Route: 065
     Dates: start: 201910

REACTIONS (1)
  - Liver disorder [Unknown]

NARRATIVE: CASE EVENT DATE: 201907
